FAERS Safety Report 13648250 (Version 1)
Quarter: 2017Q2

REPORT INFORMATION
  Report Type: Report from Study
  Country: US (occurrence: US)
  Receive Date: 20170613
  Receipt Date: 20170613
  Transmission Date: 20170830
  Serious: Yes (Death)
  Sender: FDA-Public Use
  Company Number: US-CORCEPT THERAPEUTICS INC.-US-2017CRT000432

PATIENT

DRUGS (4)
  1. KORLYM [Suspect]
     Active Substance: MIFEPRISTONE
     Indication: CUSHING^S SYNDROME
     Dosage: 300 MG, THREE TIME PER WEEK
     Route: 048
     Dates: start: 201610, end: 201705
  2. KORLYM [Suspect]
     Active Substance: MIFEPRISTONE
     Indication: ESSENTIAL HYPERTENSION
  3. KORLYM [Suspect]
     Active Substance: MIFEPRISTONE
     Indication: CHRONIC KIDNEY DISEASE
  4. KORLYM [Suspect]
     Active Substance: MIFEPRISTONE
     Indication: TYPE 2 DIABETES MELLITUS

REACTIONS (2)
  - Inappropriate schedule of drug administration [Unknown]
  - Death [Fatal]

NARRATIVE: CASE EVENT DATE: 201610
